FAERS Safety Report 9637410 (Version 2)
Quarter: 2013Q4

REPORT INFORMATION
  Report Type: Report from Study
  Country: IT (occurrence: IT)
  Receive Date: 20131022
  Receipt Date: 20131122
  Transmission Date: 20140711
  Serious: Yes (Death)
  Sender: FDA-Public Use
  Company Number: IT-MILLENNIUM PHARMACEUTICALS, INC.-2013JNJ000720

PATIENT
  Sex: 0

DRUGS (11)
  1. VELCADE [Suspect]
     Indication: PLASMA CELL MYELOMA
     Dosage: 2 MG, UNK
     Route: 058
     Dates: start: 20130802, end: 20131009
  2. CYCLOPHOSPHAMIDE [Suspect]
     Indication: PLASMA CELL MYELOMA
     Dosage: 450 MG, UNK
     Route: 042
     Dates: start: 20130802, end: 20131009
  3. DEXAMETHASONE [Suspect]
     Indication: PLASMA CELL MYELOMA
     Dosage: 40 MG, UNK
     Route: 048
  4. ACICLOVIR [Concomitant]
  5. BACTRIM [Concomitant]
  6. ZYLORIC [Concomitant]
  7. LANSOPRAZOLE [Concomitant]
  8. NEORECORMON [Concomitant]
  9. FENTANYL [Concomitant]
  10. LEVOLAC [Concomitant]
  11. ABSTRAL [Concomitant]

REACTIONS (1)
  - Completed suicide [Fatal]
